FAERS Safety Report 7256091-6 (Version None)
Quarter: 2011Q1

REPORT INFORMATION
  Report Type: 
  Country: None (occurrence: None)
  Receive Date: 20110129
  Receipt Date: 20100601
  Transmission Date: 20110831
  Serious: No
  Sender: FDA-Public Use
  Company Number: US-ABBOTT-10P-163-0648640-00

PATIENT
  Age: 63 Year
  Sex: Female

DRUGS (8)
  1. HUMALOG [Concomitant]
     Indication: TYPE 1 DIABETES MELLITUS
  2. AMBIEN [Concomitant]
     Indication: INSOMNIA
  3. ZIAC [Concomitant]
     Indication: HYPERTENSION
  4. LANTUS [Concomitant]
     Indication: TYPE 1 DIABETES MELLITUS
  5. HUMIRA [Suspect]
     Indication: PSORIASIS
     Dates: start: 20070601, end: 20100330
  6. SYNTHROID [Concomitant]
     Indication: HYPOTHYROIDISM
  7. LOTREL [Concomitant]
     Indication: HYPERTENSION
  8. VOLTARAN [Concomitant]
     Indication: PSORIATIC ARTHROPATHY

REACTIONS (5)
  - PSORIASIS [None]
  - SKIN HAEMORRHAGE [None]
  - DEVICE MALFUNCTION [None]
  - SKIN FISSURES [None]
  - INAPPROPRIATE SCHEDULE OF DRUG ADMINISTRATION [None]
